FAERS Safety Report 10534707 (Version 2)
Quarter: 2014Q4

REPORT INFORMATION
  Report Type: Spontaneous
  Country: US (occurrence: US)
  Receive Date: 20141022
  Receipt Date: 20141022
  Transmission Date: 20150529
  Serious: Yes (Hospitalization, Disabling, Other)
  Sender: FDA-Public Use
  Company Number: US-GLAXOSMITHKLINE-A0699118A

PATIENT
  Sex: Male
  Weight: 93 kg

DRUGS (7)
  1. GLUCOTROL XL [Concomitant]
     Active Substance: GLIPIZIDE
     Dates: start: 20000313
  2. HUMALOG [Concomitant]
     Active Substance: INSULIN LISPRO
     Dates: start: 20030210
  3. LOPRESSOR [Concomitant]
     Active Substance: METOPROLOL TARTRATE
     Dates: start: 20030415
  4. HYDROCHLOROTHIAZIDE. [Concomitant]
     Active Substance: HYDROCHLOROTHIAZIDE
     Dates: start: 20070810
  5. AVANDIA [Suspect]
     Active Substance: ROSIGLITAZONE MALEATE
     Indication: TYPE 2 DIABETES MELLITUS
     Dosage: 2 MG, QD
     Route: 048
     Dates: start: 199912, end: 200303
  6. PRECOSE [Concomitant]
     Active Substance: ACARBOSE
     Dates: start: 20010614, end: 200302
  7. ACTOS [Concomitant]
     Active Substance: PIOGLITAZONE HYDROCHLORIDE
     Dates: start: 20030210

REACTIONS (6)
  - Deformity [Unknown]
  - Cardiac failure congestive [Unknown]
  - Anxiety [Unknown]
  - Coronary artery disease [Unknown]
  - Heart injury [Not Recovered/Not Resolved]
  - Myocardial infarction [Unknown]
